FAERS Safety Report 22066308 (Version 1)
Quarter: 2023Q1

REPORT INFORMATION
  Report Type: Spontaneous
  Country: US (occurrence: US)
  Receive Date: 20230306
  Receipt Date: 20230306
  Transmission Date: 20230418
  Serious: Yes (Hospitalization, Other)
  Sender: FDA-Public Use
  Company Number: US-DSPHARMA-2023SUN000359

PATIENT
  Age: 12 Year
  Sex: Male

DRUGS (1)
  1. LATUDA [Suspect]
     Active Substance: LURASIDONE HYDROCHLORIDE
     Dosage: 40 MG, QD
     Route: 048

REACTIONS (4)
  - Supraventricular tachycardia [Unknown]
  - Autism spectrum disorder [Unknown]
  - Attention deficit hyperactivity disorder [Unknown]
  - Therapy interrupted [Unknown]
